FAERS Safety Report 19092633 (Version 1)
Quarter: 2021Q2

REPORT INFORMATION
  Report Type: Spontaneous
  Country: CN (occurrence: CN)
  Receive Date: 20210405
  Receipt Date: 20210405
  Transmission Date: 20210717
  Serious: Yes (Other)
  Sender: FDA-Public Use
  Company Number: CN-PURDUE-USA-2021-0240197

PATIENT
  Age: 85 Year
  Sex: Female
  Weight: 50 kg

DRUGS (2)
  1. OXYCONTIN [Suspect]
     Active Substance: OXYCODONE HYDROCHLORIDE
     Dosage: PAIN TITRATION
     Route: 048
     Dates: start: 20200402, end: 20200403
  2. OXYCONTIN [Suspect]
     Active Substance: OXYCODONE HYDROCHLORIDE
     Indication: CANCER PAIN
     Dosage: 10 MG, Q12H
     Route: 048
     Dates: start: 20200403, end: 20200406

REACTIONS (2)
  - Depressed level of consciousness [Recovering/Resolving]
  - Apathy [Recovering/Resolving]

NARRATIVE: CASE EVENT DATE: 20200406
